FAERS Safety Report 20739886 (Version 1)
Quarter: 2022Q2

REPORT INFORMATION
  Report Type: Spontaneous
  Country: CA (occurrence: CA)
  Receive Date: 20220422
  Receipt Date: 20220422
  Transmission Date: 20220720
  Serious: No
  Sender: FDA-Public Use
  Company Number: CA-PFIZER INC-2021676897

PATIENT

DRUGS (1)
  1. EPINEPHRINE [Suspect]
     Active Substance: EPINEPHRINE

REACTIONS (3)
  - Product packaging issue [Unknown]
  - Product expiration date issue [Unknown]
  - Product lot number issue [Unknown]
